FAERS Safety Report 5558018-1 (Version None)
Quarter: 2007Q4

REPORT INFORMATION
  Report Type: 
  Country: None (occurrence: None)
  Receive Date: 20071214
  Receipt Date: 20071126
  Transmission Date: 20080405
  Serious: Yes (Other)
  Sender: FDA-Public Use
  Company Number: DE-RANBAXY-2007RR-11699

PATIENT

DRUGS (1)
  1. CLARITHROMYCIN SUSPENSION 250MG/5ML [Suspect]
     Dosage: 125 MG, UNK
     Dates: start: 20071121

REACTIONS (2)
  - COUGH [None]
  - VOMITING [None]
